FAERS Safety Report 7002182-4 (Version None)
Quarter: 2010Q3

REPORT INFORMATION
  Report Type: 
  Country: None (occurrence: None)
  Receive Date: 20100920
  Receipt Date: 20100908
  Transmission Date: 20110219
  Serious: Yes (Other)
  Sender: FDA-Public Use
  Company Number: US-PFIZER INC-2010114387

PATIENT
  Sex: Female
  Weight: 74 kg

DRUGS (20)
  1. TIKOSYN [Suspect]
     Indication: CORONARY ARTERY DISEASE
     Dosage: 250 UG, 2X/DAY
     Route: 048
  2. TIKOSYN [Suspect]
     Indication: ATRIAL FIBRILLATION
  3. TIKOSYN [Suspect]
     Indication: HYPERTENSION
  4. PROTONIX [Concomitant]
     Dosage: UNK
  5. MINOXIDIL [Concomitant]
     Dosage: UNK
  6. LEXAPRO [Concomitant]
     Dosage: UNK
  7. NEURONTIN [Concomitant]
     Dosage: UNK
  8. NEBIVOLOL [Concomitant]
     Dosage: UNK
  9. LASIX [Concomitant]
     Dosage: UNK
  10. PLAVIX [Concomitant]
     Dosage: UNK
  11. ACETYLSALICYLIC ACID [Concomitant]
     Dosage: UNK
  12. IMDUR [Concomitant]
     Dosage: UNK
  13. LOVAZA [Concomitant]
     Dosage: UNK
  14. LIPITOR [Concomitant]
     Dosage: UNK
  15. XANAX [Concomitant]
     Dosage: UNK
  16. TRICOR [Concomitant]
     Dosage: UNK
  17. SYNTHROID [Concomitant]
     Dosage: UNK
  18. VALSARTAN [Concomitant]
     Dosage: UNK
  19. CALCIUM [Concomitant]
     Dosage: UNK
  20. MULTI-VITAMINS [Concomitant]
     Dosage: UNK

REACTIONS (1)
  - BACTERIAL TEST POSITIVE [None]
